FAERS Safety Report 24211297 (Version 7)
Quarter: 2024Q4

REPORT INFORMATION
  Report Type: Report from Study
  Country: US (occurrence: US)
  Receive Date: 20240814
  Receipt Date: 20241223
  Transmission Date: 20250115
  Serious: Yes (Other)
  Sender: SUNOVION
  Company Number: US-SUMITOMO PHARMA SWITZERLAND GMBH-2024SPA000714

PATIENT

DRUGS (4)
  1. ORGOVYX [Suspect]
     Active Substance: RELUGOLIX
     Indication: Prostate cancer
     Dosage: 120 MG, QD
     Route: 048
     Dates: start: 20240803
  2. XTANDI [Suspect]
     Active Substance: ENZALUTAMIDE
     Dosage: UNK
     Route: 065
  3. METFORMIN [Concomitant]
     Active Substance: METFORMIN HYDROCHLORIDE
     Dosage: 500 MG, BID
     Route: 065
  4. NUBEQA [Concomitant]
     Active Substance: DAROLUTAMIDE
     Indication: Prostate cancer
     Dosage: 600 MG, BID
     Route: 065
     Dates: start: 20240803

REACTIONS (13)
  - Diabetes mellitus [Unknown]
  - Fall [Unknown]
  - Irritability [Unknown]
  - Muscular weakness [Unknown]
  - Pollakiuria [Unknown]
  - Dizziness [Unknown]
  - Asthenia [Unknown]
  - Fatigue [Not Recovered/Not Resolved]
  - Blood glucose increased [Unknown]
  - Pain in extremity [Unknown]
  - Therapy interrupted [Unknown]
  - Product dose omission in error [Unknown]
  - Incorrect dose administered [Unknown]
